FAERS Safety Report 12546310 (Version 7)
Quarter: 2016Q4

REPORT INFORMATION
  Report Type: Spontaneous
  Country: FR (occurrence: FR)
  Receive Date: 20160711
  Receipt Date: 20161018
  Transmission Date: 20170207
  Serious: Yes (Hospitalization)
  Sender: FDA-Public Use
  Company Number: PHHY2016FR094752

PATIENT
  Age: 72 Year
  Sex: Female

DRUGS (16)
  1. ZOPHREN [Suspect]
     Active Substance: ONDANSETRON
     Indication: PREMEDICATION
     Dosage: 8 MG, UNK
     Route: 042
     Dates: start: 20160525, end: 20160525
  2. CAELYX [Suspect]
     Active Substance: DOXORUBICIN HYDROCHLORIDE
     Indication: OVARIAN CANCER
     Dosage: 44 MG, UNK
     Route: 065
     Dates: start: 20160525, end: 20160525
  3. YONDELIS [Interacting]
     Active Substance: TRABECTEDIN
     Indication: OVARIAN CANCER
     Dosage: 1.6 MG, QD
     Route: 042
     Dates: start: 20160525, end: 20160525
  4. ZOPHREN [Suspect]
     Active Substance: ONDANSETRON
     Dosage: 8 MG, UNK
     Route: 042
     Dates: start: 20160726, end: 20160726
  5. PLITICAN [Suspect]
     Active Substance: ALIZAPRIDE HYDROCHLORIDE
     Indication: PREMEDICATION
     Dosage: 50 MG, UNK
     Route: 042
     Dates: start: 20160525, end: 20160525
  6. EMEND [Interacting]
     Active Substance: APREPITANT
     Indication: PREMEDICATION
     Dosage: UNK
     Route: 042
     Dates: start: 20160525, end: 20160525
  7. DEXAMETHASONE. [Suspect]
     Active Substance: DEXAMETHASONE
     Dosage: 20 MG, UNK
     Route: 042
     Dates: start: 20160705, end: 20160705
  8. PLITICAN [Suspect]
     Active Substance: ALIZAPRIDE HYDROCHLORIDE
     Dosage: 50 MG, UNK
     Route: 042
     Dates: start: 20160726, end: 20160726
  9. DEXAMETHASONE. [Suspect]
     Active Substance: DEXAMETHASONE
     Dosage: 20 MG, UNK
     Route: 042
     Dates: start: 20160726, end: 20160726
  10. CAELYX [Suspect]
     Active Substance: DOXORUBICIN HYDROCHLORIDE
     Dosage: 34 MG, UNK
     Route: 065
     Dates: start: 20160726, end: 20160726
  11. ZOPHREN [Suspect]
     Active Substance: ONDANSETRON
     Dosage: 8 MG, UNK
     Route: 042
     Dates: start: 20160705, end: 20160705
  12. CAELYX [Suspect]
     Active Substance: DOXORUBICIN HYDROCHLORIDE
     Dosage: 34 MG, UNK
     Route: 065
     Dates: start: 20160705, end: 20160705
  13. YONDELIS [Interacting]
     Active Substance: TRABECTEDIN
     Dosage: 1.2 MG, UNK
     Route: 042
     Dates: start: 20160705, end: 20160705
  14. YONDELIS [Interacting]
     Active Substance: TRABECTEDIN
     Dosage: 1.2 MG, UNK
     Route: 042
     Dates: start: 20160726, end: 20160726
  15. DEXAMETHASONE. [Suspect]
     Active Substance: DEXAMETHASONE
     Indication: PREMEDICATION
     Dosage: 20 MG, UNK
     Route: 042
     Dates: start: 20160525, end: 20160525
  16. PLITICAN [Suspect]
     Active Substance: ALIZAPRIDE HYDROCHLORIDE
     Dosage: 50 MG, UNK
     Route: 042
     Dates: start: 20160705, end: 20160705

REACTIONS (5)
  - Vertigo [Recovered/Resolved]
  - Headache [Recovered/Resolved]
  - Febrile bone marrow aplasia [Recovered/Resolved]
  - Chest discomfort [Recovered/Resolved]
  - Tachycardia [Recovered/Resolved]

NARRATIVE: CASE EVENT DATE: 20160525
